FAERS Safety Report 12177150 (Version 19)
Quarter: 2017Q3

REPORT INFORMATION
  Report Type: Spontaneous
  Country: CA (occurrence: CA)
  Receive Date: 20160315
  Receipt Date: 20170721
  Transmission Date: 20171127
  Serious: Yes (Hospitalization, Other)
  Sender: FDA-Public Use
  Company Number: CA-009507513-1603CAN005344

PATIENT
  Age: 65 Year
  Sex: Male
  Weight: 88 kg

DRUGS (10)
  1. KEYTRUDA [Suspect]
     Active Substance: PEMBROLIZUMAB
     Dosage: 160 MG, Q3W (2 MG/KG)
     Route: 042
     Dates: start: 20160519
  2. KEYTRUDA [Suspect]
     Active Substance: PEMBROLIZUMAB
     Indication: METASTATIC MALIGNANT MELANOMA
     Dosage: 166 MG, Q3W (2 MG/KG)
     Route: 042
     Dates: start: 20160219, end: 2016
  3. KEYTRUDA [Suspect]
     Active Substance: PEMBROLIZUMAB
     Dosage: 160 MG, Q3W (2 MG/KG)
     Route: 042
     Dates: start: 2016, end: 2016
  4. KEYTRUDA [Suspect]
     Active Substance: PEMBROLIZUMAB
     Dosage: 160 MG, Q3W (2 MG/KG)
     Route: 042
     Dates: start: 20170428
  5. KEYTRUDA [Suspect]
     Active Substance: PEMBROLIZUMAB
     Dosage: 160 MG, Q3W (2 MG/KG)
     Route: 042
     Dates: start: 2016, end: 2016
  6. KEYTRUDA [Suspect]
     Active Substance: PEMBROLIZUMAB
     Dosage: 160 MG, Q3W (2 MG/KG)
     Route: 042
  7. KEYTRUDA [Suspect]
     Active Substance: PEMBROLIZUMAB
     Dosage: 174 MG, Q3WEEKS (2 MG/KG)
     Route: 042
     Dates: start: 2017
  8. KEYTRUDA [Suspect]
     Active Substance: PEMBROLIZUMAB
     Dosage: 153 MG, Q3W (2 MG/KG)
     Route: 042
     Dates: start: 2016, end: 20160519
  9. KEYTRUDA [Suspect]
     Active Substance: PEMBROLIZUMAB
     Dosage: 160 MG, Q3W (2 MG/KG)
     Route: 042
     Dates: start: 2016, end: 2016
  10. KEYTRUDA [Suspect]
     Active Substance: PEMBROLIZUMAB
     Dosage: 174 MG, Q3WEEKS (2 MG/KG)
     Route: 042
     Dates: start: 2017, end: 20170720

REACTIONS (8)
  - Rheumatoid arthritis [Unknown]
  - Weight decreased [Recovered/Resolved]
  - Fatigue [Not Recovered/Not Resolved]
  - Malignant neoplasm progression [Unknown]
  - Nasopharyngitis [Unknown]
  - Weight increased [Unknown]
  - Urinary retention [Unknown]
  - Off label use [Unknown]

NARRATIVE: CASE EVENT DATE: 2016
